FAERS Safety Report 4352882-X (Version None)
Quarter: 2004Q2

REPORT INFORMATION
  Report Type: 
  Country: None (occurrence: None)
  Receive Date: 20040504
  Receipt Date: 20040414
  Transmission Date: 20050107
  Serious: Yes (Hospitalization)
  Sender: FDA-Public Use
  Company Number: US-AMGEN-US073023

PATIENT
  Sex: Female
  Weight: 177.1 kg

DRUGS (5)
  1. ENBREL [Suspect]
     Indication: RHEUMATOID ARTHRITIS
     Route: 058
     Dates: start: 20031101, end: 20040115
  2. PREDNISONE [Concomitant]
     Route: 048
  3. SULFASALAZINE [Concomitant]
     Route: 048
  4. LEVOTHRYOXINE SODIUM [Concomitant]
     Route: 048
  5. PROPOXYPHENE [Concomitant]
     Route: 048

REACTIONS (4)
  - ASTERIXIS [None]
  - DYSPNOEA [None]
  - MENTAL IMPAIRMENT [None]
  - MYASTHENIA GRAVIS [None]
